FAERS Safety Report 4829517-2 (Version None)
Quarter: 2005Q4

REPORT INFORMATION
  Report Type: 
  Country: None (occurrence: None)
  Receive Date: 20051116
  Receipt Date: 20051108
  Transmission Date: 20060501
  Serious: Yes (Death)
  Sender: FDA-Public Use
  Company Number: FR-SANOFI-SYNTHELABO-A02200502939

PATIENT

DRUGS (2)
  1. PLAVIX [Suspect]
     Indication: DRUG USE FOR UNKNOWN INDICATION
     Dosage: UNK
     Route: 048
  2. ASPIRIN [Concomitant]
     Dosage: UNK
     Route: 065

REACTIONS (1)
  - THROMBOCYTOPENIA [None]
